FAERS Safety Report 17197741 (Version 2)
Quarter: 2019Q4

REPORT INFORMATION
  Report Type: Report from Study
  Country: US (occurrence: US)
  Receive Date: 20191224
  Receipt Date: 20191230
  Transmission Date: 20200122
  Serious: Yes (Hospitalization)
  Sender: FDA-Public Use
  Company Number: US-EXELIXIS-XL18419026081

PATIENT
  Age: 79 Year
  Sex: Female
  Weight: 81 kg

DRUGS (2)
  1. XL184 [Suspect]
     Active Substance: CABOZANTINIB
     Indication: METASTASES TO LUNG
     Dosage: 60 MG, QD
     Route: 048
     Dates: start: 20191121, end: 20191210
  2. DURVALUMAB. [Suspect]
     Active Substance: DURVALUMAB
     Indication: HEPATOCELLULAR CARCINOMA
     Dosage: 1500 MG Q28DAYS
     Route: 042
     Dates: start: 20191121

REACTIONS (1)
  - Compression fracture [Unknown]

NARRATIVE: CASE EVENT DATE: 20191215
